FAERS Safety Report 24043886 (Version 1)
Quarter: 2024Q3

REPORT INFORMATION
  Report Type: Spontaneous
  Country: MT (occurrence: MT)
  Receive Date: 20240703
  Receipt Date: 20240703
  Transmission Date: 20241016
  Serious: No
  Sender: MENARINI
  Company Number: MT-MEN-2024-098666

PATIENT
  Age: 73 Year
  Sex: Male

DRUGS (1)
  1. RANEXA [Suspect]
     Active Substance: RANOLAZINE
     Indication: Angina pectoris
     Dosage: 1000 MG,QD
     Route: 048
     Dates: start: 202405, end: 202405

REACTIONS (2)
  - Constipation [Recovered/Resolved]
  - Hiccups [Recovered/Resolved]

NARRATIVE: CASE EVENT DATE: 20240501
